FAERS Safety Report 5130845-4 (Version None)
Quarter: 2006Q4

REPORT INFORMATION
  Report Type: 
  Country: None (occurrence: None)
  Receive Date: 20061013
  Receipt Date: 20060724
  Transmission Date: 20070319
  Serious: No
  Sender: FDA-Public Use
  Company Number: S06-USA-02835-01

PATIENT
  Age: 50 Year
  Sex: Male

DRUGS (2)
  1. AEROBID [Suspect]
     Indication: ASTHMA
     Dates: start: 19910101
  2. ALBUTEROL [Concomitant]

REACTIONS (2)
  - DYSGEUSIA [None]
  - PHARYNGOLARYNGEAL PAIN [None]
